FAERS Safety Report 15129537 (Version 1)
Quarter: 2018Q3

REPORT INFORMATION
  Report Type: Spontaneous
  Country: US (occurrence: US)
  Receive Date: 20180711
  Receipt Date: 20180711
  Transmission Date: 20181010
  Serious: No
  Sender: FDA-Public Use
  Company Number: US-BAYER-2018-130947

PATIENT
  Age: 78 Year
  Sex: Male
  Weight: 74.97 kg

DRUGS (1)
  1. MIRALAX [Suspect]
     Active Substance: POLYETHYLENE GLYCOL 3350
     Indication: IRRITABLE BOWEL SYNDROME
     Dosage: 1 DF, UNK
     Route: 048

REACTIONS (10)
  - Abdominal distension [Recovered/Resolved]
  - Product use in unapproved indication [Unknown]
  - Poor quality drug administered [Unknown]
  - Incorrect drug administration duration [Unknown]
  - Gastrointestinal tract irritation [Recovered/Resolved]
  - Product taste abnormal [None]
  - Discomfort [Recovered/Resolved]
  - Epigastric discomfort [Recovered/Resolved]
  - Product prescribing issue [Unknown]
  - Product odour abnormal [None]

NARRATIVE: CASE EVENT DATE: 2018
